FAERS Safety Report 16064285 (Version 1)
Quarter: 2019Q1

REPORT INFORMATION
  Report Type: Report from Study
  Country: ES (occurrence: ES)
  Receive Date: 20190312
  Receipt Date: 20190312
  Transmission Date: 20190418
  Serious: Yes (Other)
  Sender: FDA-Public Use
  Company Number: ES-MYLANLABS-2019M1022442

PATIENT
  Age: 87 Year
  Sex: Female

DRUGS (7)
  1. DOLOCATIL [Concomitant]
     Active Substance: ACETAMINOPHEN
     Indication: PAIN
     Dosage: UNK
     Dates: start: 2015
  2. PANTOPRAZOL KERN PHARMA [Concomitant]
     Dosage: 20 MILLIGRAM, QD
     Dates: start: 2015
  3. ESCITALOPRAM [Suspect]
     Active Substance: ESCITALOPRAM OXALATE
     Indication: ANXIETY
     Dosage: 15 MILLIGRAM, QD
     Dates: start: 2015
  4. ALDOCUMAR [Concomitant]
     Active Substance: WARFARIN SODIUM
     Dosage: UNK
  5. CANDESARTAN RATIO [Concomitant]
     Indication: HYPERTENSION
     Dosage: 16 MILLIGRAM, QD
     Dates: start: 20170922
  6. SEGURIL [Interacting]
     Active Substance: FUROSEMIDE
     Indication: CARDIAC FAILURE
     Dosage: 1-1/2-0
     Route: 048
     Dates: start: 20170502
  7. LEXATIN                            /00424801/ [Concomitant]
     Active Substance: BROMAZEPAM
     Dosage: 1-0-1
     Dates: start: 2015

REACTIONS (2)
  - Hypokalaemia [Recovering/Resolving]
  - Drug interaction [Unknown]

NARRATIVE: CASE EVENT DATE: 201708
